FAERS Safety Report 12948971 (Version 1)
Quarter: 2016Q4

REPORT INFORMATION
  Report Type: Report from Study
  Country: US (occurrence: US)
  Receive Date: 20161116
  Receipt Date: 20161116
  Transmission Date: 20170207
  Serious: Yes (Life-Threatening, Hospitalization)
  Sender: FDA-Public Use
  Company Number: US-SA-2016SA201733

PATIENT
  Age: 47 Year
  Sex: Male

DRUGS (1)
  1. LEMTRADA [Suspect]
     Active Substance: ALEMTUZUMAB
     Indication: MULTIPLE SCLEROSIS
     Route: 041
     Dates: start: 20151116, end: 20151120

REACTIONS (6)
  - Dyspnoea [Recovered/Resolved]
  - Thrombosis [Unknown]
  - Multiple sclerosis relapse [Unknown]
  - Chest pain [Recovered/Resolved]
  - Pulmonary embolism [Recovered/Resolved]
  - Nuclear magnetic resonance imaging abnormal [Not Recovered/Not Resolved]

NARRATIVE: CASE EVENT DATE: 2016
